FAERS Safety Report 7577354-0 (Version None)
Quarter: 2011Q2

REPORT INFORMATION
  Report Type: 
  Country: None (occurrence: None)
  Receive Date: 20110628
  Receipt Date: 20110615
  Transmission Date: 20111010
  Serious: Yes (Other)
  Sender: FDA-Public Use
  Company Number: FR-BAYER-2010-001276

PATIENT
  Age: 41 Year
  Sex: Female
  Weight: 79 kg

DRUGS (1)
  1. MIRENA [Suspect]
     Indication: CONTRACEPTION
     Dosage: 20 ?G, CONT
     Route: 015
     Dates: start: 20060101, end: 20100101

REACTIONS (5)
  - RUPTURED ECTOPIC PREGNANCY [None]
  - INTRA-ABDOMINAL HAEMORRHAGE [None]
  - AMENORRHOEA [None]
  - GENITAL HAEMORRHAGE [None]
  - SHOCK HAEMORRHAGIC [None]
